FAERS Safety Report 24916493 (Version 1)
Quarter: 2025Q1

REPORT INFORMATION
  Report Type: Spontaneous
  Country: US (occurrence: US)
  Receive Date: 20250203
  Receipt Date: 20250203
  Transmission Date: 20250408
  Serious: Yes (Hospitalization)
  Sender: INTRA-CELLULAR THERAPIES
  Company Number: US-INTRA-CELLULAR THERAPIES, INC.-2025ICT00081

PATIENT
  Sex: Female

DRUGS (2)
  1. CAPLYTA [Suspect]
     Active Substance: LUMATEPERONE
     Indication: Schizoaffective disorder
     Dates: start: 202411, end: 2024
  2. CAPLYTA [Suspect]
     Active Substance: LUMATEPERONE
     Dates: start: 2024

REACTIONS (4)
  - Depression [Unknown]
  - Anger [Unknown]
  - Hallucination [Unknown]
  - Off label use [Not Recovered/Not Resolved]
